FAERS Safety Report 8141959-9 (Version None)
Quarter: 2012Q1

REPORT INFORMATION
  Report Type: 
  Country: None (occurrence: None)
  Receive Date: 20120216
  Receipt Date: 20120213
  Transmission Date: 20120608
  Serious: Yes (Hospitalization)
  Sender: FDA-Public Use
  Company Number: NL-GLAXOSMITHKLINE-B0781713A

PATIENT
  Sex: Male

DRUGS (1)
  1. DUTASTERIDE/TAMSULOSIN HYDROCHLORIDE [Suspect]
     Indication: BENIGN PROSTATIC HYPERPLASIA
     Route: 048
     Dates: start: 20100924, end: 20120125

REACTIONS (5)
  - BREAST TENDERNESS [None]
  - TACHYCARDIA [None]
  - GYNAECOMASTIA [None]
  - HYPERHIDROSIS [None]
  - CHEST DISCOMFORT [None]
